FAERS Safety Report 5175158-X (Version None)
Quarter: 2006Q4

REPORT INFORMATION
  Report Type: 
  Country: None (occurrence: None)
  Receive Date: 20061214
  Receipt Date: 20060519
  Transmission Date: 20070319
  Serious: No
  Sender: FDA-Public Use
  Company Number: US-AMGEN-KDL180333

PATIENT
  Sex: Female

DRUGS (1)
  1. ENBREL [Suspect]
     Indication: PSORIATIC ARTHROPATHY
     Route: 058
     Dates: start: 20031001

REACTIONS (4)
  - ACCIDENTAL NEEDLE STICK [None]
  - ARTHROPOD BITE [None]
  - CELLULITIS [None]
  - VULVOVAGINAL MYCOTIC INFECTION [None]
